FAERS Safety Report 5639489-9 (Version None)
Quarter: 2008Q1

REPORT INFORMATION
  Report Type: 
  Country: None (occurrence: None)
  Receive Date: 20080226
  Receipt Date: 20080214
  Transmission Date: 20080703
  Serious: Yes (Death, Life-Threatening, Other)
  Sender: FDA-Public Use
  Company Number: PE-PFIZER INC-2008015219

PATIENT
  Sex: Female

DRUGS (1)
  1. LYRICA [Suspect]
     Route: 048
     Dates: start: 20071029, end: 20080212

REACTIONS (2)
  - DEATH [None]
  - MALAISE [None]
